FAERS Safety Report 4762843-4 (Version None)
Quarter: 2005Q3

REPORT INFORMATION
  Report Type: 
  Country: None (occurrence: None)
  Receive Date: 20050906
  Receipt Date: 20050824
  Transmission Date: 20060218
  Serious: Yes (Hospitalization)
  Sender: FDA-Public Use
  Company Number: 2005-DE-03045GD

PATIENT
  Sex: 0

DRUGS (1)
  1. MORPHINE [Suspect]
     Indication: POSTOPERATIVE ANALGESIA

REACTIONS (2)
  - ANAESTHETIC COMPLICATION [None]
  - DRUG EFFECT DECREASED [None]
